FAERS Safety Report 5406252-3 (Version None)
Quarter: 2007Q3

REPORT INFORMATION
  Report Type: 
  Country: None (occurrence: None)
  Receive Date: 20070806
  Receipt Date: 20070722
  Transmission Date: 20080115
  Serious: Yes (Other)
  Sender: FDA-Public Use
  Company Number: DE-KINGPHARMUSA00001-K200700938

PATIENT

DRUGS (4)
  1. KETALAR [Suspect]
     Indication: COMPLEX REGIONAL PAIN SYNDROME
     Dosage: 1 MG/KG, BOLUS
     Route: 042
  2. KETALAR [Suspect]
     Dosage: 3-5 MG/HR
     Route: 042
  3. MIDAZOLAM [Concomitant]
     Indication: SEDATION
     Dosage: 5 MG, BOLUS
     Route: 042
  4. MIDAZOLAM [Concomitant]
     Dosage: CONTINUOUS INFUSIONS

REACTIONS (3)
  - AGITATION [None]
  - ANXIETY [None]
  - NIGHTMARE [None]
